FAERS Safety Report 5850479-3 (Version None)
Quarter: 2008Q3

REPORT INFORMATION
  Report Type: 
  Country: None (occurrence: None)
  Receive Date: 20080819
  Receipt Date: 20080807
  Transmission Date: 20090109
  Serious: Yes (Hospitalization)
  Sender: FDA-Public Use
  Company Number: FR-PFIZER INC-2008065734

PATIENT
  Sex: Female

DRUGS (10)
  1. LYRICA [Suspect]
     Indication: PAIN
     Route: 048
  2. TRAMADOL HCL [Suspect]
     Indication: PAIN
     Route: 048
  3. ESCITALOPRAM [Suspect]
     Indication: DEPRESSION
     Dosage: DAILY DOSE:10MG-FREQ:EVERY DAY
     Route: 048
  4. NIFEDIPINE [Concomitant]
  5. HYZAAR [Concomitant]
  6. NITROGLYCERIN [Concomitant]
  7. CLOPIDOGREL [Concomitant]
  8. OMEPRAZOLE [Concomitant]
  9. SIMVASTATIN [Concomitant]
  10. ZOLPIDEM [Concomitant]

REACTIONS (3)
  - CONVULSION [None]
  - EPILEPSY [None]
  - POSTICTAL STATE [None]
